FAERS Safety Report 13473917 (Version 2)
Quarter: 2017Q2

REPORT INFORMATION
  Report Type: Spontaneous
  Country: US (occurrence: US)
  Receive Date: 20170424
  Receipt Date: 20170607
  Transmission Date: 20170830
  Serious: Yes (Disabling, Other)
  Sender: FDA-Public Use
  Company Number: US-REGENERON PHARMACEUTICALS, INC.-2017-14669

PATIENT

DRUGS (2)
  1. EYLEA [Suspect]
     Active Substance: AFLIBERCEPT
     Dosage: EVERY 2-3 MONTHS, RIGHT EYE (OD)
     Route: 031
     Dates: start: 20170404, end: 20170404
  2. EYLEA [Suspect]
     Active Substance: AFLIBERCEPT
     Indication: RETINAL VEIN OCCLUSION
     Dosage: EVERY 2-3 MONTHS, RIGHT EYE (OD)
     Route: 031
     Dates: start: 20150707, end: 20170509

REACTIONS (2)
  - Blindness transient [Recovered/Resolved]
  - Endophthalmitis [Recovered/Resolved]

NARRATIVE: CASE EVENT DATE: 20170407
